FAERS Safety Report 16802364 (Version 3)
Quarter: 2020Q1

REPORT INFORMATION
  Report Type: Report from Study
  Country: US (occurrence: US)
  Receive Date: 20190912
  Receipt Date: 20200320
  Transmission Date: 20200409
  Serious: Yes (Hospitalization)
  Sender: FDA-Public Use
  Company Number: US-ACTELION-A-NJ2019-194164

PATIENT
  Sex: Female
  Weight: 50.79 kg

DRUGS (3)
  1. ELIQUIS [Concomitant]
     Active Substance: APIXABAN
  2. ADEMPAS [Concomitant]
     Active Substance: RIOCIGUAT
  3. OPSUMIT [Suspect]
     Active Substance: MACITENTAN
     Indication: PULMONARY HYPERTENSION
     Dosage: 10 MG, QD
     Route: 048

REACTIONS (12)
  - Eye pruritus [Unknown]
  - Arthralgia [Unknown]
  - Weight increased [Unknown]
  - Pruritus [Unknown]
  - Rash macular [Unknown]
  - Seasonal allergy [Not Recovered/Not Resolved]
  - Rheumatoid arthritis [Unknown]
  - Lacrimation increased [Unknown]
  - Hypotension [Unknown]
  - Malaise [Unknown]
  - Pneumonia [Unknown]
  - Influenza [Unknown]
